FAERS Safety Report 5772021-8 (Version None)
Quarter: 2008Q2

REPORT INFORMATION
  Report Type: 
  Country: None (occurrence: None)
  Receive Date: 20080612
  Receipt Date: 20080612
  Transmission Date: 20081010
  Serious: Yes (Other)
  Sender: FDA-Public Use
  Company Number: None

PATIENT
  Age: 27 Year
  Sex: Male
  Weight: 77.4 kg

DRUGS (10)
  1. RAPAMYCIN 1 MG WYETH [Suspect]
     Indication: IMMUNOSUPPRESSANT DRUG THERAPY
     Dosage: 4.5 MG ONE A DAY PO
     Route: 048
     Dates: start: 20080528
  2. PROGRAF [Concomitant]
  3. MYFORTIC [Concomitant]
  4. BACTRIM [Concomitant]
  5. MYCELEX [Concomitant]
  6. FAMOTIDINE [Concomitant]
  7. VALTREX [Concomitant]
  8. FUROSEMIDE [Concomitant]
  9. DULCOLAX [Concomitant]
  10. ASPIRIN [Concomitant]

REACTIONS (2)
  - DYSPHAGIA [None]
  - STOMATITIS [None]
